FAERS Safety Report 19744264 (Version 1)
Quarter: 2021Q3

REPORT INFORMATION
  Report Type: Spontaneous
  Country: GB (occurrence: GB)
  Receive Date: 20210825
  Receipt Date: 20210825
  Transmission Date: 20211014
  Serious: Yes (Other)
  Sender: FDA-Public Use
  Company Number: GB-ACCORD-236354

PATIENT
  Age: 75 Year
  Sex: Female
  Weight: 68.03 kg

DRUGS (3)
  1. ESOMEPRAZOLE/ESOMEPRAZOLE MAGNESIUM/ESOMEPRAZOLE SODIUM [Concomitant]
     Active Substance: ESOMEPRAZOLE
     Indication: ILL-DEFINED DISORDER
  2. ROSUVASTATIN. [Suspect]
     Active Substance: ROSUVASTATIN
     Indication: TRANSIENT ISCHAEMIC ATTACK
     Dosage: 5 MGMS
     Route: 048
     Dates: start: 202008
  3. CLOPIDOGREL [Concomitant]
     Active Substance: CLOPIDOGREL BISULFATE
     Indication: ILL-DEFINED DISORDER

REACTIONS (2)
  - Asthenia [Unknown]
  - Muscle spasms [Not Recovered/Not Resolved]

NARRATIVE: CASE EVENT DATE: 202012
